FAERS Safety Report 5089584-0 (Version None)
Quarter: 2006Q3

REPORT INFORMATION
  Report Type: 
  Country: None (occurrence: None)
  Receive Date: 20060822
  Receipt Date: 20060811
  Transmission Date: 20061208
  Serious: Yes (Other)
  Sender: FDA-Public Use
  Company Number: HQWYE682510JUL06

PATIENT
  Age: 66 Year
  Sex: Female
  Weight: 53.57 kg

DRUGS (9)
  1. PREMARIN [Suspect]
     Indication: ENDOMETRIOSIS
     Dosage: SEE IMAGE, ORAL
     Route: 048
     Dates: start: 19660101, end: 20030101
  2. PREMARIN [Suspect]
     Indication: MENOPAUSAL SYMPTOMS
     Dosage: SEE IMAGE, ORAL
     Route: 048
     Dates: start: 19660101, end: 20030101
  3. PREMARIN [Suspect]
     Indication: ENDOMETRIOSIS
     Dosage: SEE IMAGE, ORAL
     Route: 048
     Dates: start: 20030101, end: 20050101
  4. PREMARIN [Suspect]
     Indication: MENOPAUSAL SYMPTOMS
     Dosage: SEE IMAGE, ORAL
     Route: 048
     Dates: start: 20030101, end: 20050101
  5. PREMARIN [Suspect]
     Indication: ENDOMETRIOSIS
     Dosage: SEE IMAGE, ORAL
     Route: 048
     Dates: start: 20050421
  6. PREMARIN [Suspect]
     Indication: MENOPAUSAL SYMPTOMS
     Dosage: SEE IMAGE, ORAL
     Route: 048
     Dates: start: 20050421
  7. COREG [Concomitant]
  8. LISINOPRIL [Concomitant]
  9. BONIVA (IBANDRONATE SODIUM) [Concomitant]

REACTIONS (4)
  - ARTHROPOD BITE [None]
  - BONE DENSITY DECREASED [None]
  - CARDIOMYOPATHY [None]
  - SLEEP DISORDER [None]
